FAERS Safety Report 23723927 (Version 1)
Quarter: 2024Q2

REPORT INFORMATION
  Report Type: Spontaneous
  Country: JP (occurrence: JP)
  Receive Date: 20240409
  Receipt Date: 20240409
  Transmission Date: 20240716
  Serious: Yes (Other)
  Sender: FDA-Public Use
  Company Number: JP-BAYER-2024A052121

PATIENT
  Sex: Male

DRUGS (2)
  1. XOFIGO [Suspect]
     Active Substance: RADIUM RA-223 DICHLORIDE
     Indication: Prostate cancer
     Dosage: UNK
     Dates: start: 20240314
  2. XTANDI [Concomitant]
     Active Substance: ENZALUTAMIDE
     Indication: Prostate cancer
     Dates: start: 20240314

REACTIONS (2)
  - Prostate cancer [Recovering/Resolving]
  - Anaemia [None]
